FAERS Safety Report 4753160-7 (Version None)
Quarter: 2005Q3

REPORT INFORMATION
  Report Type: 
  Country: None (occurrence: None)
  Receive Date: 20050823
  Receipt Date: 20050808
  Transmission Date: 20060218
  Serious: Yes (Disabling)
  Sender: FDA-Public Use
  Company Number: S05-USA-03449-01

PATIENT
  Age: 57 Year
  Sex: Female
  Weight: 40.3701 kg

DRUGS (6)
  1. THYROID TAB [Suspect]
     Indication: HYPOTHYROIDISM
     Dosage: 60 MG QD PO
     Route: 048
     Dates: start: 19950101, end: 20050101
  2. THYROID TAB [Suspect]
     Indication: HYPOTHYROIDISM
     Dosage: 45 MG QD PO
     Route: 048
     Dates: start: 20050101
  3. PROGESTERONE [Concomitant]
  4. TRIESTROGEN [Concomitant]
  5. ACIDOPHILUS [Concomitant]
  6. DEHYDROEPIANDROSTERONE [Concomitant]

REACTIONS (29)
  - ADRENAL INSUFFICIENCY [None]
  - AGITATION [None]
  - ALOPECIA [None]
  - ANTI-THYROID ANTIBODY POSITIVE [None]
  - ASTHENIA [None]
  - AUTOIMMUNE DISORDER [None]
  - AUTOIMMUNE THYROIDITIS [None]
  - BLOOD CORTISOL INCREASED [None]
  - BURNING SENSATION [None]
  - CACHEXIA [None]
  - CONFUSIONAL STATE [None]
  - DIARRHOEA [None]
  - DYSGEUSIA [None]
  - DYSPNOEA [None]
  - FEELING HOT [None]
  - FUNGAL INFECTION [None]
  - GASTROINTESTINAL DISORDER [None]
  - HAIR TEXTURE ABNORMAL [None]
  - HYPERHIDROSIS [None]
  - ONYCHOMYCOSIS [None]
  - OSTEOPOROSIS [None]
  - PERFORMANCE STATUS DECREASED [None]
  - PRESCRIBED OVERDOSE [None]
  - SKIN DISCOLOURATION [None]
  - STRESS [None]
  - TONGUE DISCOLOURATION [None]
  - TONGUE DISORDER [None]
  - TREMOR [None]
  - WEIGHT DECREASED [None]
